FAERS Safety Report 8464962-8 (Version None)
Quarter: 2012Q2

REPORT INFORMATION
  Report Type: 
  Country: None (occurrence: None)
  Receive Date: 20120626
  Receipt Date: 20120615
  Transmission Date: 20120825
  Serious: Yes (Other)
  Sender: FDA-Public Use
  Company Number: JP-VERTEX PHARMACEUTICALS INC.-AE-2012-007089

PATIENT
  Age: 70 Year
  Sex: Female

DRUGS (11)
  1. FEROTYM [Concomitant]
     Route: 048
  2. RIBAVIRIN [Concomitant]
     Indication: HEPATITIS C
     Route: 048
     Dates: start: 20120306, end: 20120508
  3. PEGINTERFERON ALFA-2B [Concomitant]
     Route: 051
     Dates: start: 20120404
  4. EPADEL S [Concomitant]
     Route: 048
  5. CLARITIN REDITABS [Concomitant]
     Route: 048
  6. LIVALO [Concomitant]
     Route: 048
  7. PEGINTERFERON ALFA-2B [Concomitant]
     Route: 051
     Dates: start: 20120312, end: 20120328
  8. RABEPRAZOLE SODIUM [Concomitant]
     Route: 048
  9. TELAVIC (TELAPREVIR) [Suspect]
     Indication: HEPATITIS C
     Route: 048
     Dates: start: 20120306, end: 20120530
  10. RIBAVIRIN [Concomitant]
     Route: 048
     Dates: start: 20120509
  11. PEGINTERFERON ALFA-2B [Concomitant]
     Indication: HEPATITIS C
     Route: 051
     Dates: start: 20120306, end: 20120306

REACTIONS (3)
  - ANAEMIA [None]
  - RASH [None]
  - PLATELET COUNT DECREASED [None]
